FAERS Safety Report 22395128 (Version 1)
Quarter: 2023Q2

REPORT INFORMATION
  Report Type: Spontaneous
  Country: GB (occurrence: GB)
  Receive Date: 20230601
  Receipt Date: 20230601
  Transmission Date: 20230721
  Serious: Yes (Other)
  Sender: FDA-Public Use
  Company Number: GB-MHRA-MED-202305200037091670-NBLKW

PATIENT

DRUGS (2)
  1. FEXOFENADINE [Suspect]
     Active Substance: FEXOFENADINE HYDROCHLORIDE
     Indication: Hypersensitivity
     Dosage: 120 MG ONCE A DAY; ;
     Route: 065
     Dates: start: 20180101, end: 20230502
  2. DROSPIRENONE\ETHINYL ESTRADIOL [Concomitant]
     Active Substance: DROSPIRENONE\ETHINYL ESTRADIOL
     Indication: Oral contraception
     Dates: start: 20180101

REACTIONS (5)
  - Food craving [Recovered/Resolved]
  - Binge eating [Recovered/Resolved]
  - Weight increased [Recovering/Resolving]
  - Fatigue [Recovering/Resolving]
  - Hypometabolism [Recovering/Resolving]
